FAERS Safety Report 8301382-0 (Version None)
Quarter: 2012Q2

REPORT INFORMATION
  Report Type: 
  Country: None (occurrence: None)
  Receive Date: 20120417
  Receipt Date: 20120403
  Transmission Date: 20120825
  Serious: Yes (Hospitalization)
  Sender: FDA-Public Use
  Company Number: 1172194

PATIENT
  Age: 51 Year
  Sex: Female
  Weight: 35.8342 kg

DRUGS (7)
  1. (ONDANSETRON) [Concomitant]
  2. HYDROCORTISONE [Concomitant]
  3. SODIUM CHLORIDE [Concomitant]
  4. CYCLOPHOSPHAMIDE [Concomitant]
  5. DOCETAXEL [Suspect]
     Indication: BREAST CANCER
     Dosage: 140 MG DILUTED IN 250 ML SODIUM CHLORIDE 0.9%  INTRAVENOUS (NOT OTHERWISE SPECIFIED)
     Route: 042
     Dates: start: 20111228, end: 20120118
  6. DEXAMETHASONE [Concomitant]
  7. CHLORPHENIRAMINE MALEATE [Concomitant]

REACTIONS (3)
  - ARTHRALGIA [None]
  - DIARRHOEA [None]
  - NEUTROPENIC SEPSIS [None]
